FAERS Safety Report 8573364-5 (Version None)
Quarter: 2012Q3

REPORT INFORMATION
  Report Type: 
  Country: None (occurrence: None)
  Receive Date: 20120806
  Receipt Date: 20120725
  Transmission Date: 20120928
  Serious: Yes (Hospitalization, Disabling, Other)
  Sender: FDA-Public Use
  Company Number: US-009507513-1203USA03307

PATIENT

DRUGS (10)
  1. BONIVA [Suspect]
     Indication: OSTEOPENIA
  2. BONIVA [Suspect]
     Indication: MENOPAUSE
     Dosage: 150 MG, QM
     Dates: start: 20060126, end: 20110401
  3. GLUCOSAMINE [Concomitant]
     Indication: OSTEOARTHRITIS
     Dosage: 1500 MG, QD
  4. CALCIUM (UNSPECIFIED) [Concomitant]
     Indication: OSTEOPENIA
  5. CELEBREX [Concomitant]
     Indication: OSTEOARTHRITIS
     Dosage: 200 MG, QD
  6. FOSAMAX [Suspect]
     Indication: OSTEOPENIA
  7. CHONDROITIN SULFATE SODIUM (+) GLUCOSAMINE SULFATE [Concomitant]
     Indication: OSTEOARTHRITIS
  8. FOSAMAX [Suspect]
     Indication: MENOPAUSE
     Dosage: 70 MG, QW
     Route: 048
     Dates: start: 20040801, end: 20060126
  9. NAPROXEN (ALEVE) [Concomitant]
     Indication: OSTEOARTHRITIS
     Dates: start: 20080612
  10. VITAMIN D [Concomitant]
     Indication: OSTEOPENIA

REACTIONS (72)
  - HAEMORRHAGE [None]
  - SCOLIOSIS [None]
  - TENDON INJURY [None]
  - GASTROINTESTINAL HAEMORRHAGE [None]
  - RENAL DISORDER [None]
  - PRURITUS [None]
  - OSTEOPOROSIS [None]
  - MULTIPLE FRACTURES [None]
  - ANXIETY [None]
  - INTERVERTEBRAL DISC DEGENERATION [None]
  - HEPATITIS [None]
  - SOMNOLENCE [None]
  - WEIGHT INCREASED [None]
  - MEDICATION ERROR [None]
  - RENAL COLIC [None]
  - PAIN IN EXTREMITY [None]
  - CONSTIPATION [None]
  - LOW TURNOVER OSTEOPATHY [None]
  - GAIT DISTURBANCE [None]
  - TOOTH DISORDER [None]
  - TENDONITIS [None]
  - LIVER FUNCTION TEST ABNORMAL [None]
  - POLYCHONDRITIS [None]
  - PANCREATIC CYST [None]
  - FOOT DEFORMITY [None]
  - SINUS DISORDER [None]
  - PYELONEPHRITIS [None]
  - NODAL OSTEOARTHRITIS [None]
  - ARTHRALGIA [None]
  - NAUSEA [None]
  - ADVERSE EVENT [None]
  - HYPERTENSION [None]
  - CRYSTAL ARTHROPATHY [None]
  - THROAT IRRITATION [None]
  - HAEMATOCHEZIA [None]
  - ANAEMIA [None]
  - OFF LABEL USE [None]
  - BACK PAIN [None]
  - PAIN [None]
  - EXOSTOSIS [None]
  - ROTATOR CUFF SYNDROME [None]
  - TEMPOROMANDIBULAR JOINT SYNDROME [None]
  - VIITH NERVE PARALYSIS [None]
  - GROIN PAIN [None]
  - NEPHROLITHIASIS [None]
  - BONE DISORDER [None]
  - UPPER GASTROINTESTINAL HAEMORRHAGE [None]
  - MELAENA [None]
  - GASTRITIS [None]
  - DEPRESSION [None]
  - VIRAL INFECTION [None]
  - SPONDYLITIS [None]
  - ELECTROCARDIOGRAM T WAVE INVERSION [None]
  - POSTMENOPAUSE [None]
  - UTERINE DILATION AND CURETTAGE [None]
  - GASTROOESOPHAGEAL REFLUX DISEASE [None]
  - MUSCLE SPASMS [None]
  - DIARRHOEA [None]
  - HYPOTENSION [None]
  - LIVER TENDERNESS [None]
  - DRUG DISPENSING ERROR [None]
  - INFECTION [None]
  - BURSITIS [None]
  - HAEMORRHOIDS [None]
  - JAUNDICE [None]
  - FEMUR FRACTURE [None]
  - DYSPEPSIA [None]
  - MUSCULOSKELETAL DISORDER [None]
  - CELLULITIS [None]
  - HYPERCHOLESTEROLAEMIA [None]
  - FLANK PAIN [None]
  - VOMITING [None]
